FAERS Safety Report 6209978-7 (Version None)
Quarter: 2009Q2

REPORT INFORMATION
  Report Type: 
  Country: None (occurrence: None)
  Receive Date: 20090601
  Receipt Date: 20090519
  Transmission Date: 20091009
  Serious: Yes (Other)
  Sender: FDA-Public Use
  Company Number: JP-PFIZER INC-2009204955

PATIENT
  Age: 65 Year

DRUGS (2)
  1. ZOLOFT [Suspect]
     Route: 048
  2. LENDORMIN [Suspect]
     Route: 048

REACTIONS (1)
  - LIVER DISORDER [None]
